FAERS Safety Report 9433919 (Version 1)
Quarter: 2013Q3

REPORT INFORMATION
  Report Type: Spontaneous
  Country: IN (occurrence: IN)
  Receive Date: 20130801
  Receipt Date: 20130801
  Transmission Date: 20140515
  Serious: Yes (Hospitalization)
  Sender: FDA-Public Use
  Company Number: PHHY2013IN078494

PATIENT
  Age: 8 Year
  Sex: Female

DRUGS (6)
  1. SALBUTAMOL [Suspect]
     Indication: ASTHMA
  2. IPRATROPIUM+SALBUTAMOL [Interacting]
     Dosage: 3 DF, UNK
  3. HYDROCORTISONE [Interacting]
  4. THEOPHYLLINE [Interacting]
  5. AMOXICILLIN + CLAVULANIC ACID [Concomitant]
  6. FLUTICASONE W/SALMETEROL [Concomitant]
     Indication: ASTHMA

REACTIONS (7)
  - Lactic acidosis [Recovering/Resolving]
  - Hyperventilation [Recovering/Resolving]
  - Tachypnoea [Recovering/Resolving]
  - Blood glucose increased [Recovering/Resolving]
  - Toxicity to various agents [Recovering/Resolving]
  - Drug interaction [Unknown]
  - Drug ineffective [Unknown]
